FAERS Safety Report 7231534-2 (Version None)
Quarter: 2011Q1

REPORT INFORMATION
  Report Type: 
  Country: None (occurrence: None)
  Receive Date: 20110118
  Receipt Date: 20110112
  Transmission Date: 20110831
  Serious: Yes (Hospitalization, Disabling)
  Sender: FDA-Public Use
  Company Number: FR-JNJFOC-20060501101

PATIENT
  Age: 31 Year
  Sex: Male

DRUGS (2)
  1. REMICADE [Suspect]
     Indication: ANKYLOSING SPONDYLITIS
     Dosage: 14TH INFUSION
     Route: 042
  2. REMICADE [Suspect]
     Route: 042

REACTIONS (1)
  - THYROID CANCER [None]
